FAERS Safety Report 15120003 (Version 6)
Quarter: 2019Q1

REPORT INFORMATION
  Report Type: Report from Study
  Country: BR (occurrence: BR)
  Receive Date: 20180709
  Receipt Date: 20190201
  Transmission Date: 20190417
  Serious: Yes (Other)
  Sender: FDA-Public Use
  Company Number: PHHY2018BR006218

PATIENT
  Age: 66 Year
  Sex: Female
  Weight: 78 kg

DRUGS (7)
  1. COSENTYX [Suspect]
     Active Substance: SECUKINUMAB
     Indication: PSORIATIC ARTHROPATHY
     Dosage: 150 MG, UNK
     Route: 058
     Dates: start: 201801
  2. COSENTYX [Suspect]
     Active Substance: SECUKINUMAB
     Dosage: UNK
     Route: 065
     Dates: start: 20180412
  3. COSENTYX [Suspect]
     Active Substance: SECUKINUMAB
     Dosage: 300 MG, QW (PENS)
     Route: 058
     Dates: start: 20180419
  4. COSENTYX [Suspect]
     Active Substance: SECUKINUMAB
     Dosage: 300 MG, QMO
     Route: 058
     Dates: start: 20181104
  5. LOSARTAN. [Concomitant]
     Active Substance: LOSARTAN
     Indication: HYPERTENSION
     Dosage: 2 DF, QD
     Route: 048
  6. COSENTYX [Suspect]
     Active Substance: SECUKINUMAB
     Dosage: 300 MG, QW (PENS)
     Route: 058
     Dates: start: 20180404
  7. XOLAIR [Suspect]
     Active Substance: OMALIZUMAB
     Indication: PRODUCT USED FOR UNKNOWN INDICATION
     Dosage: UNK
     Route: 065

REACTIONS (25)
  - Dyspnoea [Unknown]
  - Drug hypersensitivity [Not Recovered/Not Resolved]
  - Fatigue [Unknown]
  - Headache [Unknown]
  - Macular hole [Unknown]
  - Throat tightness [Recovering/Resolving]
  - Productive cough [Recovering/Resolving]
  - Dry throat [Recovered/Resolved]
  - Pain [Not Recovered/Not Resolved]
  - Malaise [Recovering/Resolving]
  - Bone pain [Unknown]
  - Panic disorder [Recovering/Resolving]
  - Abdominal pain upper [Unknown]
  - Blood pressure abnormal [Recovering/Resolving]
  - Visual impairment [Unknown]
  - Varicose vein [Unknown]
  - Diarrhoea [Unknown]
  - Pain in extremity [Unknown]
  - Lacrimation increased [Unknown]
  - Cough [Unknown]
  - Aptyalism [Recovering/Resolving]
  - Gait disturbance [Unknown]
  - Sensation of foreign body [Unknown]
  - Back pain [Not Recovered/Not Resolved]
  - Pharyngitis streptococcal [Recovering/Resolving]

NARRATIVE: CASE EVENT DATE: 201801
